FAERS Safety Report 18672822 (Version 1)
Quarter: 2020Q4

REPORT INFORMATION
  Report Type: Spontaneous
  Country: US (occurrence: US)
  Receive Date: 20201229
  Receipt Date: 20201229
  Transmission Date: 20210114
  Serious: Yes (Other)
  Sender: FDA-Public Use
  Company Number: US-JNJFOC-20201238363

PATIENT
  Age: 63 Year
  Sex: Female
  Weight: 59.09 kg

DRUGS (1)
  1. TREMFYA [Suspect]
     Active Substance: GUSELKUMAB
     Indication: PSORIATIC ARTHROPATHY
     Route: 065

REACTIONS (3)
  - Underdose [Unknown]
  - Skin cancer [Unknown]
  - Device malfunction [Unknown]

NARRATIVE: CASE EVENT DATE: 20201219
